FAERS Safety Report 8229277-1 (Version None)
Quarter: 2012Q1

REPORT INFORMATION
  Report Type: 
  Country: None (occurrence: None)
  Receive Date: 20120322
  Receipt Date: 20120313
  Transmission Date: 20120608
  Serious: Yes (Hospitalization)
  Sender: FDA-Public Use
  Company Number: US-ACTELION-A-US2011-59085

PATIENT

DRUGS (2)
  1. TRACLEER [Suspect]
     Indication: PULMONARY ARTERIAL HYPERTENSION
     Dosage: UNK
     Route: 048
     Dates: start: 20060913
  2. OXYGEN [Concomitant]

REACTIONS (5)
  - DYSPNOEA EXERTIONAL [None]
  - GASTROENTERITIS [None]
  - DIARRHOEA [None]
  - VOMITING [None]
  - DEHYDRATION [None]
